FAERS Safety Report 12368928 (Version 1)
Quarter: 2016Q2

REPORT INFORMATION
  Report Type: Spontaneous
  Country: FR (occurrence: FR)
  Receive Date: 20160513
  Receipt Date: 20160513
  Transmission Date: 20160815
  Serious: Yes (Congenital Anomaly)
  Sender: FDA-Public Use
  Company Number: FR-PFIZER INC-2016252712

PATIENT
  Sex: Male

DRUGS (6)
  1. VALIUM [Suspect]
     Active Substance: DIAZEPAM
     Dosage: 10 MG, UNK
     Route: 064
     Dates: start: 20111005, end: 20120602
  2. ABILIFY [Suspect]
     Active Substance: ARIPIPRAZOLE
     Dosage: UNK
     Route: 064
     Dates: end: 20111005
  3. VALIUM [Suspect]
     Active Substance: DIAZEPAM
     Dosage: 5 MG, UNK
     Route: 064
     Dates: end: 20111005
  4. LARGACTIL /00011901/ [Suspect]
     Active Substance: CHLORPROMAZINE
     Dosage: UNK
     Route: 064
     Dates: start: 20111005, end: 20120602
  5. FLOXYFRAL [Suspect]
     Active Substance: FLUVOXAMINE
     Dosage: UNK
     Route: 064
     Dates: start: 20111005, end: 20120602
  6. EFFEXOR LP [Suspect]
     Active Substance: VENLAFAXINE HYDROCHLORIDE
     Indication: BIPOLAR DISORDER
     Dosage: 75 MG, 1X/DAY
     Route: 064
     Dates: end: 20111005

REACTIONS (4)
  - Maternal exposure during pregnancy [Not Recovered/Not Resolved]
  - Attention deficit/hyperactivity disorder [Unknown]
  - Cystic fibrosis [Not Recovered/Not Resolved]
  - Asthma [Unknown]

NARRATIVE: CASE EVENT DATE: 20120602
